FAERS Safety Report 11778370 (Version 1)
Quarter: 2015Q4

REPORT INFORMATION
  Report Type: Spontaneous
  Country: US (occurrence: US)
  Receive Date: 20151125
  Receipt Date: 20151125
  Transmission Date: 20160304
  Serious: Yes (Other)
  Sender: FDA-Public Use
  Company Number: US-GLAXOSMITHKLINE-K201401866

PATIENT
  Age: 16 Year
  Sex: Female
  Weight: 55.34 kg

DRUGS (3)
  1. CETIRIZINE HYDROCHLORIDE. [Suspect]
     Active Substance: CETIRIZINE HYDROCHLORIDE
     Route: 065
  2. FLORADIX [Suspect]
     Active Substance: IRON
     Route: 048
  3. VERAMYST [Suspect]
     Active Substance: FLUTICASONE FUROATE
     Route: 045

REACTIONS (2)
  - Electrocardiogram QT prolonged [Unknown]
  - Transaminases increased [Recovered/Resolved]
